FAERS Safety Report 10733589 (Version 2)
Quarter: 2015Q1

REPORT INFORMATION
  Report Type: Spontaneous
  Country: US (occurrence: US)
  Receive Date: 20150123
  Receipt Date: 20150203
  Transmission Date: 20150721
  Serious: Yes (Hospitalization, Other)
  Sender: FDA-Public Use
  Company Number: US-GLAXOSMITHKLINE-US2015GSK006775

PATIENT
  Age: 77 Year
  Sex: Male

DRUGS (1)
  1. OFATUMUMAB [Suspect]
     Active Substance: OFATUMUMAB
     Indication: CHRONIC LYMPHOCYTIC LEUKAEMIA

REACTIONS (9)
  - Central nervous system lesion [Unknown]
  - JC virus test positive [Unknown]
  - Hemianopia homonymous [Unknown]
  - Alexia [Unknown]
  - Cognitive disorder [Unknown]
  - Visual impairment [Unknown]
  - Disorientation [Unknown]
  - Progressive multifocal leukoencephalopathy [Unknown]
  - Pancytopenia [Unknown]
